FAERS Safety Report 16905305 (Version 1)
Quarter: 2019Q4

REPORT INFORMATION
  Report Type: Spontaneous
  Country: US (occurrence: US)
  Receive Date: 20191010
  Receipt Date: 20191010
  Transmission Date: 20200122
  Serious: No
  Sender: FDA-Public Use
  Company Number: US-SA-2019SA272860

PATIENT
  Sex: Female

DRUGS (2)
  1. LANTUS [Suspect]
     Active Substance: INSULIN GLARGINE
     Dosage: 60 U, EVERY PM
     Route: 065
  2. LANTUS [Suspect]
     Active Substance: INSULIN GLARGINE
     Dosage: 40 U, EVERY PM
     Route: 065

REACTIONS (5)
  - Visual impairment [Unknown]
  - Product dose omission [Unknown]
  - Renal pain [Unknown]
  - Hypersensitivity [Unknown]
  - Pruritus [Unknown]
